FAERS Safety Report 22961385 (Version 5)
Quarter: 2023Q4

REPORT INFORMATION
  Report Type: Spontaneous
  Country: CZ (occurrence: CZ)
  Receive Date: 20230920
  Receipt Date: 20231109
  Transmission Date: 20240110
  Serious: Yes (Hospitalization, Other)
  Sender: FDA-Public Use
  Company Number: CZ-OPELLA-2023OHG006956

PATIENT
  Age: 17 Year
  Sex: Female

DRUGS (19)
  1. CONCERTA [Suspect]
     Active Substance: METHYLPHENIDATE HYDROCHLORIDE
     Indication: Suicide attempt
     Dosage: 30 TABLETS
     Route: 048
  2. CONCERTA [Suspect]
     Active Substance: METHYLPHENIDATE HYDROCHLORIDE
     Route: 048
  3. IMODIUM [Suspect]
     Active Substance: LOPERAMIDE HYDROCHLORIDE
     Indication: Suicide attempt
     Dosage: 8 TABLETS
     Route: 048
  4. AMBROXOL HYDROCHLORIDE [Suspect]
     Active Substance: AMBROXOL HYDROCHLORIDE
     Indication: Suicide attempt
     Dosage: 10 TABLETS
     Route: 048
  5. AMBROXOL HYDROCHLORIDE [Suspect]
     Active Substance: AMBROXOL HYDROCHLORIDE
     Route: 065
  6. METOPROLOL [Suspect]
     Active Substance: METOPROLOL
     Indication: Suicide attempt
     Dosage: 100 TABLETS
     Route: 048
  7. METOPROLOL [Suspect]
     Active Substance: METOPROLOL
     Route: 065
  8. PROPIVERINE [Suspect]
     Active Substance: PROPIVERINE
     Indication: Suicide attempt
     Dosage: 14 TABLETS
     Route: 048
  9. PROPIVERINE [Suspect]
     Active Substance: PROPIVERINE
     Route: 065
  10. DROTAVERINE HYDROCHLORIDE [Suspect]
     Active Substance: DROTAVERINE HYDROCHLORIDE
     Indication: Suicide attempt
     Dosage: 20 TABLETS
     Route: 048
  11. DROTAVERINE HYDROCHLORIDE [Suspect]
     Active Substance: DROTAVERINE HYDROCHLORIDE
     Route: 065
  12. NORFLOXACIN [Suspect]
     Active Substance: NORFLOXACIN
     Indication: Suicide attempt
     Dosage: 20 TABLETS
     Route: 048
  13. NORFLOXACIN [Suspect]
     Active Substance: NORFLOXACIN
     Route: 065
  14. METAMIZOLE [Suspect]
     Active Substance: METAMIZOLE
     Indication: Suicide attempt
     Dosage: 10 TABLETS
     Route: 048
  15. METAMIZOLE [Suspect]
     Active Substance: METAMIZOLE
     Route: 065
  16. PROGESTERONE [Suspect]
     Active Substance: PROGESTERONE
     Indication: Suicide attempt
     Dosage: 15 TABLETS
     Route: 048
  17. PROGESTERONE [Suspect]
     Active Substance: PROGESTERONE
     Dosage: DAILY DOSE: 30 TABLETS
     Route: 048
  18. IBUPROFEN [Suspect]
     Active Substance: IBUPROFEN
     Indication: Suicide attempt
     Dosage: 100 TABLETS
     Route: 048
  19. IBUPROFEN [Suspect]
     Active Substance: IBUPROFEN
     Route: 048

REACTIONS (9)
  - Mydriasis [Recovering/Resolving]
  - Bradycardia [Recovering/Resolving]
  - Toxicity to various agents [Recovering/Resolving]
  - Confusional state [Recovering/Resolving]
  - Dyslalia [Recovering/Resolving]
  - Metabolic acidosis [Recovering/Resolving]
  - Acidosis [Recovering/Resolving]
  - Intentional overdose [Recovering/Resolving]
  - Suicide attempt [Recovered/Resolved]
